FAERS Safety Report 20867540 (Version 1)
Quarter: 2022Q2

REPORT INFORMATION
  Report Type: Spontaneous
  Country: JP (occurrence: JP)
  Receive Date: 20220524
  Receipt Date: 20220524
  Transmission Date: 20220721
  Serious: Yes (Death, Other)
  Sender: FDA-Public Use
  Company Number: JP-MSD-M2022-06444

PATIENT
  Age: 80 Year
  Sex: Female

DRUGS (3)
  1. KEYTRUDA [Suspect]
     Active Substance: PEMBROLIZUMAB
     Indication: Renal cell carcinoma
     Dosage: 200 MILLIGRAM, Q3W
     Route: 041
     Dates: start: 20211215, end: 20220317
  2. INLYTA [Suspect]
     Active Substance: AXITINIB
     Indication: Renal cell carcinoma
     Dosage: 5 MILLIGRAM
     Route: 048
     Dates: start: 20211215, end: 20220106
  3. INLYTA [Suspect]
     Active Substance: AXITINIB
     Dosage: 3 MG ? TWICE
     Route: 048
     Dates: start: 20220118, end: 20220317

REACTIONS (3)
  - Aspiration [Fatal]
  - Choking [Fatal]
  - Proteinuria [Recovered/Resolved]

NARRATIVE: CASE EVENT DATE: 20220106
